FAERS Safety Report 25153491 (Version 1)
Quarter: 2025Q2

REPORT INFORMATION
  Report Type: Spontaneous
  Country: JP (occurrence: JP)
  Receive Date: 20250403
  Receipt Date: 20250403
  Transmission Date: 20250717
  Serious: Yes (Other)
  Sender: BIOCODEX
  Company Number: JP-BIOCODEX2-2025000393

PATIENT
  Age: 2 Year
  Sex: Female

DRUGS (1)
  1. STIRIPENTOL [Suspect]
     Active Substance: STIRIPENTOL
     Indication: Severe myoclonic epilepsy of infancy
     Route: 065

REACTIONS (1)
  - Epilepsy [Unknown]
